FAERS Safety Report 12664721 (Version 1)
Quarter: 2016Q3

REPORT INFORMATION
  Report Type: Report from Study
  Country: US (occurrence: US)
  Receive Date: 20160818
  Receipt Date: 20160818
  Transmission Date: 20161109
  Serious: No
  Sender: FDA-Public Use
  Company Number: US-AEGERION PHARMACEUTICAL INC.-AEGR002593

PATIENT
  Age: 32 Year
  Sex: Female
  Weight: 111.57 kg

DRUGS (3)
  1. ATORVASTATIN [Concomitant]
     Active Substance: ATORVASTATIN
     Indication: PRODUCT USED FOR UNKNOWN INDICATION
     Dosage: UNK
  2. PRALUENT [Concomitant]
     Active Substance: ALIROCUMAB
     Indication: PRODUCT USED FOR UNKNOWN INDICATION
     Dosage: UNK
  3. JUXTAPID [Suspect]
     Active Substance: LOMITAPIDE MESYLATE
     Indication: TYPE IIA HYPERLIPIDAEMIA
     Dosage: 5 MG, QHS
     Route: 048
     Dates: start: 20160509

REACTIONS (11)
  - Drug dose omission [Recovered/Resolved]
  - Bowel movement irregularity [Not Recovered/Not Resolved]
  - Micturition urgency [Not Recovered/Not Resolved]
  - Nausea [Recovered/Resolved]
  - Diarrhoea [Recovered/Resolved]
  - Weight decreased [Not Recovered/Not Resolved]
  - Motion sickness [Recovered/Resolved]
  - Urinary tract infection [Not Recovered/Not Resolved]
  - Nasopharyngitis [Recovered/Resolved]
  - Flatulence [Recovered/Resolved]
  - Infrequent bowel movements [Unknown]

NARRATIVE: CASE EVENT DATE: 2016
